FAERS Safety Report 7936035-1 (Version None)
Quarter: 2011Q4

REPORT INFORMATION
  Report Type: 
  Country: None (occurrence: None)
  Receive Date: 20111123
  Receipt Date: 20111116
  Transmission Date: 20120403
  Serious: Yes (Other)
  Sender: FDA-Public Use
  Company Number: IE-US-EMD SERONO, INC.-7093562

PATIENT
  Sex: Female

DRUGS (3)
  1. REBIF [Suspect]
     Indication: RELAPSING-REMITTING MULTIPLE SCLEROSIS
     Route: 058
     Dates: start: 20051030
  2. ZOLPIDEM TARTRATE [Concomitant]
     Indication: SLEEP DISORDER
  3. UNSPECIFIED ANTIBIOTIC [Concomitant]
     Route: 048

REACTIONS (2)
  - SINUSITIS [None]
  - RESPIRATORY TRACT INFECTION [None]
